FAERS Safety Report 25190390 (Version 3)
Quarter: 2025Q2

REPORT INFORMATION
  Report Type: Spontaneous
  Country: US (occurrence: US)
  Receive Date: 20250411
  Receipt Date: 20250626
  Transmission Date: 20250716
  Serious: No
  Sender: DAIICHI
  Company Number: US-DSJP-DS-2025-135420-US

PATIENT
  Sex: Male

DRUGS (2)
  1. TURALIO [Suspect]
     Active Substance: PEXIDARTINIB HYDROCHLORIDE
     Indication: Connective tissue neoplasm
     Dosage: 250 MG, BID (125MG X 2 CAPSULES BY MOUTH TWICE DAILY)
     Route: 048
     Dates: start: 20250214
  2. TURALIO [Suspect]
     Active Substance: PEXIDARTINIB HYDROCHLORIDE
     Indication: Soft tissue neoplasm

REACTIONS (1)
  - Blood alkaline phosphatase decreased [Not Recovered/Not Resolved]
